FAERS Safety Report 13112694 (Version 2)
Quarter: 2017Q1

REPORT INFORMATION
  Report Type: Spontaneous
  Country: JP (occurrence: JP)
  Receive Date: 20170113
  Receipt Date: 20170124
  Transmission Date: 20170428
  Serious: Yes (Other)
  Sender: FDA-Public Use
  Company Number: JP-AMGEN-JPNSP2016185965

PATIENT
  Age: 67 Year
  Sex: Male

DRUGS (2)
  1. PREDONINE [Suspect]
     Active Substance: PREDNISOLONE
     Indication: ORGANISING PNEUMONIA
     Dosage: 5 MG, QID
     Route: 048
     Dates: start: 20170108
  2. PRALIA [Suspect]
     Active Substance: DENOSUMAB
     Indication: OSTEOPOROSIS
     Dosage: 60 MG, Q6MO
     Route: 058
     Dates: start: 20161121

REACTIONS (1)
  - Spinal compression fracture [Not Recovered/Not Resolved]

NARRATIVE: CASE EVENT DATE: 20161222
